FAERS Safety Report 5970558-X (Version None)
Quarter: 2008Q4

REPORT INFORMATION
  Report Type: 
  Country: None (occurrence: None)
  Receive Date: 20081126
  Receipt Date: 20081031
  Transmission Date: 20090506
  Serious: No
  Sender: FDA-Public Use
  Company Number: US-ABBOTT-08P-163-0485018-00

PATIENT
  Sex: Male
  Weight: 111.23 kg

DRUGS (14)
  1. SIMCOR [Suspect]
     Indication: BLOOD CHOLESTEROL INCREASED
     Route: 048
     Dates: start: 20080901
  2. SIMCOR [Suspect]
     Indication: BLOOD TRIGLYCERIDES
  3. INSULIN GLARGINE [Concomitant]
     Indication: DIABETES MELLITUS
     Route: 058
  4. REPAGLINIDE [Concomitant]
     Indication: DIABETES MELLITUS
     Route: 048
  5. PIOGLITAZONE [Concomitant]
     Indication: DIABETES MELLITUS
     Route: 048
  6. EZETIMIBE [Concomitant]
     Indication: DIABETES MELLITUS
     Route: 048
  7. JANUMET [Concomitant]
     Indication: DIABETES MELLITUS
     Dosage: 100/2000
     Route: 048
  8. ISOSORBIDE MONONITRATE [Concomitant]
     Indication: HYPERTENSION
     Route: 048
  9. LABETALOL HCL [Concomitant]
     Indication: HYPERTENSION
     Route: 048
  10. AMLODIPINE [Concomitant]
     Indication: HYPERTENSION
     Route: 048
  11. HYDROCHLOROTHIAZIDE [Concomitant]
     Indication: HYPERTENSION
     Route: 048
  12. LOSARTAN POTASSIUM [Concomitant]
     Indication: HYPERTENSION
     Route: 048
  13. PANCRELIPASE [Concomitant]
     Indication: PANCREATITIS
     Route: 048
  14. ACETYLSALICYLIC ACID SRT [Concomitant]
     Indication: DRUG USE FOR UNKNOWN INDICATION

REACTIONS (5)
  - COUGH [None]
  - DRY MOUTH [None]
  - NASAL CONGESTION [None]
  - PAIN [None]
  - SNEEZING [None]
